FAERS Safety Report 22349162 (Version 1)
Quarter: 2023Q2

REPORT INFORMATION
  Report Type: Report from Study
  Country: DE (occurrence: DE)
  Receive Date: 20230522
  Receipt Date: 20230522
  Transmission Date: 20230721
  Serious: Yes (Congenital Anomaly, Other)
  Sender: FDA-Public Use
  Company Number: DE-MYLANLABS-2023M1043955

PATIENT

DRUGS (12)
  1. UNSPECIFIED INGREDIENT [Suspect]
     Active Substance: UNSPECIFIED INGREDIENT
     Indication: Foetal exposure during pregnancy
     Dosage: (MATERNAL DOSE: UNK)
     Route: 064
  2. METHOTREXATE [Suspect]
     Active Substance: METHOTREXATE
     Indication: Foetal exposure during pregnancy
     Dosage: (MATERNAL DOSE: 15 MG ON 11 MAY 2009)
     Route: 064
  3. METHOTREXATE [Suspect]
     Active Substance: METHOTREXATE
     Dosage: (MATERNAL DOSE: 15 MG ON 18 AUG 2009)
     Route: 064
  4. METHOTREXATE [Suspect]
     Active Substance: METHOTREXATE
     Dosage: (MATERNAL DOSE: 7.5 MG ON 03 NOV 2009)
     Route: 064
  5. METHOTREXATE [Suspect]
     Active Substance: METHOTREXATE
     Dosage: (MATERNAL DOSE: 7.5 MG ON 15 JUN 2010)
     Route: 064
  6. METHOTREXATE [Suspect]
     Active Substance: METHOTREXATE
     Dosage: (MATERNAL DOSE: 7.5 MG ON 07 OCT 2010)
     Route: 064
  7. METHOTREXATE [Suspect]
     Active Substance: METHOTREXATE
     Dosage: (MATERNAL DOSE: 15 MG ON 18 JUN 2013)
     Route: 064
  8. METHOTREXATE [Suspect]
     Active Substance: METHOTREXATE
     Dosage: (MATERNAL DOSE: 7.5 MG ON 11 DEC 2013)
     Route: 064
  9. METHOTREXATE [Suspect]
     Active Substance: METHOTREXATE
     Dosage: (MATERNAL DOSE: 3.8 MG ON 23 JUN 2014)
     Route: 064
  10. ENBREL [Suspect]
     Active Substance: ETANERCEPT
     Indication: Foetal exposure during pregnancy
     Dosage: (MATERNAL DOSE: 50 MG ON OCT 2009 TO AUG 2010)
     Route: 064
  11. ENBREL [Suspect]
     Active Substance: ETANERCEPT
     Dosage: (MATERNAL DOSE: 50 MG ON MAR 2012)
     Route: 064
  12. REMICADE [Suspect]
     Active Substance: INFLIXIMAB
     Indication: Foetal exposure during pregnancy
     Dosage: (MATERNAL DOSE: 200 MG ON MAY 2009 TO OCT 2009)
     Route: 064

REACTIONS (2)
  - Spina bifida [Unknown]
  - Foetal exposure during pregnancy [Unknown]
